FAERS Safety Report 9761298 (Version 2)
Quarter: 2014Q1

REPORT INFORMATION
  Report Type: Spontaneous
  Country: JP (occurrence: None)
  Receive Date: 20131212
  Receipt Date: 20140124
  Transmission Date: 20141002
  Serious: Yes (Other)
  Sender: FDA-Public Use
  Company Number: ABR_01305_2013

PATIENT
  Age: 35 Year
  Sex: Female
  Weight: 50.9 kg

DRUGS (2)
  1. GLIADEL [Suspect]
     Indication: MALIGNANT GLIOMA
     Dosage: 61.6 MG 1X INTRACEREBRAL?
     Dates: start: 20130620, end: 20130620
  2. EXCEGRAN [Concomitant]

REACTIONS (5)
  - Brain oedema [None]
  - Loss of consciousness [None]
  - Convulsion [None]
  - Deep vein thrombosis [None]
  - Implant site reaction [None]
